FAERS Safety Report 19156276 (Version 1)
Quarter: 2021Q2

REPORT INFORMATION
  Report Type: Report from Study
  Country: US (occurrence: US)
  Receive Date: 20210419
  Receipt Date: 20210419
  Transmission Date: 20210717
  Serious: Yes (Other)
  Sender: FDA-Public Use
  Company Number: US-EXELIXIS-CABO-21039472

PATIENT
  Age: 91 Year
  Sex: Male

DRUGS (1)
  1. CABOMETYX [Suspect]
     Active Substance: CABOZANTINIB S-MALATE
     Indication: HEPATOCELLULAR CARCINOMA
     Dosage: 20 MG, QD
     Route: 048
     Dates: start: 20210317, end: 202104

REACTIONS (2)
  - Cerebral arteriosclerosis [Unknown]
  - Confusional state [Unknown]

NARRATIVE: CASE EVENT DATE: 202103
